FAERS Safety Report 24932776 (Version 1)
Quarter: 2025Q1

REPORT INFORMATION
  Report Type: Report from Study
  Country: US (occurrence: US)
  Receive Date: 20250205
  Receipt Date: 20250205
  Transmission Date: 20250409
  Serious: No
  Sender: EXELIXIS
  Company Number: US-EXELIXIS-EXL-2024-000788

PATIENT
  Age: 64 Year
  Sex: Female
  Weight: 112.02 kg

DRUGS (8)
  1. CABOMETYX [Suspect]
     Active Substance: CABOZANTINIB S-MALATE
     Indication: Malignant melanoma
     Dosage: 40 MG, QD
     Route: 048
     Dates: start: 20240522, end: 20241003
  2. CABOMETYX [Suspect]
     Active Substance: CABOZANTINIB S-MALATE
     Indication: Metastases to lung
  3. JARDIANCE [Concomitant]
     Active Substance: EMPAGLIFLOZIN
  4. SIMVASTATIN [Concomitant]
     Active Substance: SIMVASTATIN
  5. CLINDAMYCIN [Concomitant]
     Active Substance: CLINDAMYCIN
  6. GLIPIZIDE [Concomitant]
     Active Substance: GLIPIZIDE
  7. LISINOPRIL [Concomitant]
     Active Substance: LISINOPRIL
  8. METFORMIN [Concomitant]
     Active Substance: METFORMIN HYDROCHLORIDE

REACTIONS (6)
  - Drug intolerance [Recovered/Resolved]
  - Tongue discomfort [Recovering/Resolving]
  - Fatigue [Recovered/Resolved]
  - Oral discomfort [Recovered/Resolved]
  - Dizziness [Recovered/Resolved]
  - Off label use [Unknown]

NARRATIVE: CASE EVENT DATE: 20240920
